FAERS Safety Report 13697878 (Version 1)
Quarter: 2017Q2

REPORT INFORMATION
  Report Type: Report from Study
  Country: CA (occurrence: CA)
  Receive Date: 20170628
  Receipt Date: 20170628
  Transmission Date: 20170830
  Serious: Yes (Other)
  Sender: FDA-Public Use
  Company Number: CA-AMGEN-CANSL2017094677

PATIENT
  Age: 77 Year
  Sex: Female

DRUGS (15)
  1. PROLIA [Suspect]
     Active Substance: DENOSUMAB
     Indication: PRODUCT USED FOR UNKNOWN INDICATION
     Dosage: UNK, UNK
     Route: 065
     Dates: start: 20160602
  2. OMEGA 3 [Concomitant]
     Active Substance: OMEGA-3 FATTY ACIDS
     Dosage: 50 MG, UNK
  3. TYLENOL [Concomitant]
     Active Substance: ACETAMINOPHEN
     Dosage: 325 MG, AS NECESSARY
  4. SYSTANE (HYPROMELLOSE 2910 (4000 MPA.S)) [Concomitant]
     Active Substance: HYPROMELLOSE 2910 (4000 MPA.S)
  5. MOMETASONE [Concomitant]
     Active Substance: MOMETASONE
     Indication: SINUS CONGESTION
     Dosage: UNK UNK, AS NECESSARY
  6. LAMISIL [Concomitant]
     Active Substance: TERBINAFINE HYDROCHLORIDE
     Indication: RASH
     Dosage: UNK UNK, AS NECESSARY
  7. VAGIFEM [Concomitant]
     Active Substance: ESTRADIOL
     Dosage: 10 MG, UNK
  8. MAGNESIUM [Concomitant]
     Active Substance: MAGNESIUM
     Dosage: 900 MG, DIVIDE IN THREE DOSE
  9. MYRBETRIQ [Concomitant]
     Active Substance: MIRABEGRON
     Dosage: 1 DF, UNK
  10. CALCIUM [Concomitant]
     Active Substance: CALCIUM
     Dosage: 500 MG, UNK
  11. DOCUSATE [Concomitant]
     Active Substance: DOCUSATE
     Dosage: 2 CAPS
  12. TRAZODONE [Concomitant]
     Active Substance: TRAZODONE HYDROCHLORIDE
     Dosage: 25 MG, CUT IN HALF
     Dates: end: 2017
  13. ASA [Concomitant]
     Active Substance: ASPIRIN
     Dosage: 81 MG, UNK
  14. AERIUS [Concomitant]
     Active Substance: DESLORATADINE
     Dosage: UNK UNK, AS NECESSARY
  15. RABEPRAZOLE [Concomitant]
     Active Substance: RABEPRAZOLE
     Indication: DYSPEPSIA

REACTIONS (15)
  - Eyelid exfoliation [Unknown]
  - Cataract [Unknown]
  - Presyncope [Recovered/Resolved]
  - Wrong technique in product usage process [Unknown]
  - Loss of personal independence in daily activities [Recovered/Resolved]
  - Body height decreased [Unknown]
  - Prolapse [Unknown]
  - Thinking abnormal [Recovered/Resolved]
  - Weight decreased [Unknown]
  - Back pain [Unknown]
  - Feeling hot [Recovered/Resolved]
  - Dizziness postural [Unknown]
  - Asthenia [Recovered/Resolved]
  - Neck pain [Unknown]
  - Dizziness [Recovered/Resolved]

NARRATIVE: CASE EVENT DATE: 201609
